FAERS Safety Report 15526756 (Version 4)
Quarter: 2018Q4

REPORT INFORMATION
  Report Type: Spontaneous
  Country: JP (occurrence: JP)
  Receive Date: 20181018
  Receipt Date: 20181129
  Transmission Date: 20190205
  Serious: No
  Sender: FDA-Public Use
  Company Number: JP-NOVOPROD-626583

PATIENT
  Age: 9 Year
  Sex: Female
  Weight: 25 kg

DRUGS (3)
  1. NORDITROPIN [Suspect]
     Active Substance: SOMATROPIN
     Dosage: GH THERAPY WAS RESUMED AT 0.21MG/KG/WEEK
     Route: 058
  2. NORDITROPIN [Suspect]
     Active Substance: SOMATROPIN
     Indication: CHONDRODYSTROPHY
     Dosage: 0.35MG/KG/WEEK
     Route: 058
     Dates: start: 20120528
  3. NORDITROPIN [Suspect]
     Active Substance: SOMATROPIN
     Dosage: 0.27MG/KG/WEEK
     Route: 058
     Dates: start: 20181009

REACTIONS (2)
  - Off label use [Unknown]
  - Glycosylated haemoglobin increased [Not Recovered/Not Resolved]

NARRATIVE: CASE EVENT DATE: 20160530
